FAERS Safety Report 8556763 (Version 3)
Quarter: 2013Q2

REPORT INFORMATION
  Report Type: Spontaneous
  Country: US (occurrence: US)
  Receive Date: 20120511
  Receipt Date: 20130613
  Transmission Date: 20140414
  Serious: Yes (Death, Other)
  Sender: FDA-Public Use
  Company Number: US-BIOGENIDEC-2012BI015633

PATIENT
  Age: 78 Year
  Sex: Male

DRUGS (1)
  1. TYSABRI [Suspect]
     Indication: MULTIPLE SCLEROSIS
     Route: 042
     Dates: start: 20070509, end: 20130515

REACTIONS (4)
  - Death [Fatal]
  - Multiple sclerosis [Fatal]
  - Bladder cancer [Unknown]
  - Ureteric cancer [Unknown]
